FAERS Safety Report 8455204 (Version 3)
Quarter: 2014Q1

REPORT INFORMATION
  Report Type: Spontaneous
  Country: BE (occurrence: BE)
  Receive Date: 20120313
  Receipt Date: 20140213
  Transmission Date: 20141002
  Serious: Yes (Hospitalization, Other)
  Sender: FDA-Public Use
  Company Number: BE-AMGEN-BELSP2012014996

PATIENT
  Sex: 0

DRUGS (4)
  1. NEULASTA [Suspect]
     Indication: CHEMOTHERAPY
     Dosage: 6 MG, 1X/3W
     Route: 058
     Dates: start: 20120121, end: 20120128
  2. BLEOMYCIN [Concomitant]
     Dosage: 20 UNIT, 1X/WEEK
     Route: 042
     Dates: start: 20120123, end: 20120315
  3. ETOPOSIDE [Concomitant]
     Dosage: 200 MG, 5 TIMES/WK
     Route: 042
     Dates: start: 20120123, end: 20120315
  4. CISPLATIN [Concomitant]
     Dosage: UNK UNK, 5 TIMES/WK
     Route: 042
     Dates: start: 20120123, end: 20120315

REACTIONS (4)
  - Venous occlusion [Unknown]
  - Thrombosis in device [Unknown]
  - Pelvic venous thrombosis [Recovering/Resolving]
  - Axillary vein thrombosis [Recovering/Resolving]
